FAERS Safety Report 14255416 (Version 1)
Quarter: 2017Q4

REPORT INFORMATION
  Report Type: Spontaneous
  Country: US (occurrence: None)
  Receive Date: 20171206
  Receipt Date: 20171206
  Transmission Date: 20180321
  Serious: No
  Sender: FDA-Public Use
  Company Number: None

PATIENT

DRUGS (2)
  1. ABILIFY [Suspect]
     Active Substance: ARIPIPRAZOLE
  2. RISPERDAL [None]
     Active Substance: RISPERIDONE

REACTIONS (6)
  - Gynaecomastia [None]
  - Breast pain [None]
  - Gambling [None]
  - Wrong technique in product usage process [None]
  - Obsessive-compulsive disorder [None]
  - Personal relationship issue [None]
